FAERS Safety Report 5801492-3 (Version None)
Quarter: 2008Q3

REPORT INFORMATION
  Report Type: 
  Country: None (occurrence: None)
  Receive Date: 20080703
  Receipt Date: 20080703
  Transmission Date: 20090109
  Serious: No
  Sender: FDA-Public Use
  Company Number: None

PATIENT
  Sex: Male

DRUGS (1)
  1. RAPTIVA [Suspect]
     Indication: PSORIASIS
     Dosage: 1 ML WEEKLY SQ
     Route: 058

REACTIONS (4)
  - DRUG INTERACTION [None]
  - PRURITUS GENERALISED [None]
  - RASH [None]
  - RASH MACULAR [None]
